FAERS Safety Report 10347857 (Version 2)
Quarter: 2016Q3

REPORT INFORMATION
  Report Type: Spontaneous
  Country: US (occurrence: US)
  Receive Date: 20140729
  Receipt Date: 20160729
  Transmission Date: 20161109
  Serious: Yes (Hospitalization)
  Sender: FDA-Public Use
  Company Number: US-PFIZER INC-2014209751

PATIENT
  Age: 44 Year
  Sex: Female
  Weight: 58.96 kg

DRUGS (18)
  1. LYRICA [Suspect]
     Active Substance: PREGABALIN
     Indication: FIBROMYALGIA
     Dosage: 150 MG IN THE MORNING AND 300 MG IN NIGHT)
     Route: 048
     Dates: start: 2009
  2. NAMENDA [Concomitant]
     Active Substance: MEMANTINE HYDROCHLORIDE
     Dosage: 5 MG, DAILY
     Route: 048
  3. FLEXERIL [Concomitant]
     Active Substance: CYCLOBENZAPRINE HYDROCHLORIDE
     Indication: MUSCLE SPASMS
     Dosage: 10 MG, AS NEEDED [TAKE 1 TABLET, THREE TIMES DAILY ]
     Route: 048
  4. MELATONIN [Concomitant]
     Active Substance: MELATONIN
     Dosage: 10.5 MG, 1X/DAY
     Route: 048
  5. MAXALT-MLT [Concomitant]
     Active Substance: RIZATRIPTAN BENZOATE
     Indication: MIGRAINE
     Dosage: 10 MG, AS NEEDED (DISSOLVE ONE TABLET BY MOUTH ONCE AS NEEDED FOR MIGRAINE, MAY REPEAT IN 2 HOURS)
     Route: 048
  6. COCONUT OIL [Concomitant]
     Active Substance: COCONUT OIL
     Dosage: 1000 MG, 2X/DAY
     Route: 048
  7. ULTRAM [Concomitant]
     Active Substance: TRAMADOL HYDROCHLORIDE
     Dosage: 50 MG, 2X/DAY
     Route: 048
  8. PRILOSEC [Concomitant]
     Active Substance: OMEPRAZOLE MAGNESIUM
     Dosage: 40 MG, 2X/DAY
     Route: 048
  9. PAXIL [Concomitant]
     Active Substance: PAROXETINE HYDROCHLORIDE
     Dosage: 30 MG, 1X/DAY [EVERY MORNING]
     Route: 048
  10. OMEGA 3 /01333901/ [Concomitant]
     Active Substance: FISH OIL\TOCOPHEROL
     Dosage: 645 MG, 1X/DAY [NIGHTLY AT BED TIME]
     Route: 048
  11. LACTOBACILLUS RHAMNOSUS [Concomitant]
     Active Substance: LACTOBACILLUS RHAMNOSUS
     Dosage: 1 DF, DAILY
     Route: 048
  12. PEPCID [Concomitant]
     Active Substance: FAMOTIDINE
     Dosage: 20 MG, 2X/DAY
     Route: 048
  13. NAMENDA [Concomitant]
     Active Substance: MEMANTINE HYDROCHLORIDE
     Dosage: MAY INCREASE TO 1 TABLET TWICE DAILY IN 1 WEEK
  14. LYRICA [Suspect]
     Active Substance: PREGABALIN
     Dosage: 225 MG, 2X/DAY
     Route: 048
     Dates: end: 2012
  15. CINNAMON. [Concomitant]
     Active Substance: CINNAMON
     Dosage: 500 MG, 1X/DAY
     Route: 048
  16. ZOFRAN [Concomitant]
     Active Substance: ONDANSETRON HYDROCHLORIDE
     Indication: NAUSEA
     Dosage: 8 MG, AS NEEDED (EVERY 8 (EIGHT) HOURS)
     Route: 048
  17. TEMOVATE [Concomitant]
     Active Substance: CLOBETASOL PROPIONATE
     Dosage: 0.05 % 15 G TWICE DAILY
     Route: 061
  18. FOLVITE [Concomitant]
     Active Substance: FOLIC ACID
     Dosage: 400 UG, 1X/DAY
     Route: 048

REACTIONS (1)
  - Withdrawal syndrome [Unknown]

NARRATIVE: CASE EVENT DATE: 2012
